FAERS Safety Report 22126645 (Version 1)
Quarter: 2023Q1

REPORT INFORMATION
  Report Type: Spontaneous
  Country: PT (occurrence: PT)
  Receive Date: 20230322
  Receipt Date: 20230322
  Transmission Date: 20230418
  Serious: Yes (Death)
  Sender: FDA-Public Use
  Company Number: None

PATIENT
  Age: 91 Year
  Sex: Female
  Weight: 60 kg

DRUGS (1)
  1. ZITHROMAX [Suspect]
     Active Substance: AZITHROMYCIN DIHYDRATE
     Indication: Tracheobronchitis
     Dosage: 500MG
     Route: 042
     Dates: start: 20230307, end: 20230307

REACTIONS (10)
  - Bronchospasm [Fatal]
  - Hypotension [Fatal]
  - Agitation [Fatal]
  - Bradycardia [Fatal]
  - Dyspnoea [Fatal]
  - Respiratory failure [Fatal]
  - Anaphylactic reaction [Fatal]
  - Rash [Fatal]
  - Discomfort [Fatal]
  - Cardiopulmonary failure [Fatal]

NARRATIVE: CASE EVENT DATE: 20230307
